FAERS Safety Report 4777134-5 (Version None)
Quarter: 2005Q3

REPORT INFORMATION
  Report Type: 
  Country: None (occurrence: None)
  Receive Date: 20050922
  Receipt Date: 20050922
  Transmission Date: 20060218
  Serious: No
  Sender: FDA-Public Use
  Company Number: None

PATIENT
  Age: 52 Year
  Sex: Female
  Weight: 96.6162 kg

DRUGS (6)
  1. HYDROCHLOROTHIAZIDE [Suspect]
     Indication: ESSENTIAL HYPERTENSION
     Dosage: 1 TABLET  QD   PO  (DURATION: LESS THAN 30 DAYS)
     Route: 048
     Dates: start: 20040519, end: 20040618
  2. SULFACETAMIDE SODIUM [Suspect]
     Indication: CONJUNCTIVITIS
     Dosage: 1 DROP   4-5 TIMES A DAY   OPHTHALMIC
     Route: 047
     Dates: start: 20040511
  3. GUAIFENESIN/DEXTROMETHORPHAN SYRUP [Concomitant]
  4. BENZONATATE [Concomitant]
  5. FEXOFENADINE HCL [Concomitant]
  6. HUMIRA [Concomitant]

REACTIONS (6)
  - DERMATITIS [None]
  - EXFOLIATIVE RASH [None]
  - OPEN WOUND [None]
  - RASH ERYTHEMATOUS [None]
  - URTICARIA [None]
  - WOUND SECRETION [None]
